FAERS Safety Report 9213929 (Version 1)
Quarter: 2013Q2

REPORT INFORMATION
  Report Type: Spontaneous
  Country: US (occurrence: US)
  Receive Date: 20130405
  Receipt Date: 20130405
  Transmission Date: 20140414
  Serious: No
  Sender: FDA-Public Use
  Company Number: US-PFIZER INC-2013108378

PATIENT
  Age: 41 Year
  Sex: Female
  Weight: 68.03 kg

DRUGS (1)
  1. RELPAX [Suspect]
     Indication: MIGRAINE
     Dosage: SOMETIMES SHE TOOK ONE TABLET AND SOMETIMES TWO TABLETS BUT NEVER MORE THAN 2 TABLETS IN , AS NEEDED
     Dates: start: 2012

REACTIONS (1)
  - Throat tightness [Recovered/Resolved]
